FAERS Safety Report 7377439-8 (Version None)
Quarter: 2011Q1

REPORT INFORMATION
  Report Type: 
  Country: None (occurrence: None)
  Receive Date: 20110328
  Receipt Date: 20110321
  Transmission Date: 20110831
  Serious: No
  Sender: FDA-Public Use
  Company Number: US-PFIZER INC-US-WYE-H17968910

PATIENT
  Sex: Male
  Weight: 77.1 kg

DRUGS (7)
  1. SIMVASTATIN [Concomitant]
  2. DOFETILIDE [Concomitant]
  3. MYLANTA [Concomitant]
  4. FINASTERIDE [Concomitant]
  5. PROTONIX [Suspect]
     Indication: GASTROOESOPHAGEAL REFLUX DISEASE
     Dosage: 40 MG, 1X/DAY
     Route: 048
     Dates: start: 20100928
  6. CLOPIDOGREL [Concomitant]
  7. METOPROLOL [Concomitant]

REACTIONS (2)
  - DRUG INEFFECTIVE [None]
  - INSOMNIA [None]
